FAERS Safety Report 8261500-X (Version None)
Quarter: 2012Q2

REPORT INFORMATION
  Report Type: 
  Country: None (occurrence: None)
  Receive Date: 20120405
  Receipt Date: 20120323
  Transmission Date: 20120825
  Serious: Yes (Death)
  Sender: FDA-Public Use
  Company Number: FR-ASTELLAS-2012US003244

PATIENT
  Sex: Male
  Weight: 140 kg

DRUGS (1)
  1. AMBISOME [Suspect]
     Indication: ZYGOMYCOSIS
     Dosage: 10 MG/KG, UID/QD
     Route: 065
     Dates: start: 20120301

REACTIONS (1)
  - DEATH [None]
